FAERS Safety Report 11715138 (Version 4)
Quarter: 2016Q2

REPORT INFORMATION
  Report Type: Report from Study
  Country: US (occurrence: US)
  Receive Date: 20151109
  Receipt Date: 20160523
  Transmission Date: 20160815
  Serious: Yes (Other)
  Sender: FDA-Public Use
  Company Number: US-UCBSA-2015035196

PATIENT
  Age: 66 Year
  Sex: Male
  Weight: 70 kg

DRUGS (28)
  1. VENLAFAXINE HYDROCHLORIDE. [Concomitant]
     Active Substance: VENLAFAXINE HYDROCHLORIDE
     Indication: PRODUCT USED FOR UNKNOWN INDICATION
     Dosage: 75 MG, ONCE DAILY (QD)
  2. VALIUM [Concomitant]
     Active Substance: DIAZEPAM
     Indication: ANXIETY
  3. VALIUM [Concomitant]
     Active Substance: DIAZEPAM
     Indication: EMOTIONAL DISORDER
  4. VOLTAREN [Concomitant]
     Active Substance: DICLOFENAC SODIUM
     Indication: PRODUCT USED FOR UNKNOWN INDICATION
     Dosage: 0.5 MG BID, AS NEEDED (PRN)
     Route: 061
  5. ATIVAN [Concomitant]
     Active Substance: LORAZEPAM
     Indication: ANXIETY
     Dosage: 0.5 MG, AS NEEDED (PRN) BID
  6. PAXIL [Concomitant]
     Active Substance: PAROXETINE HYDROCHLORIDE
     Indication: EMOTIONAL DISORDER
  7. FLORINEF ACETATE [Concomitant]
     Active Substance: FLUDROCORTISONE ACETATE
     Indication: PRODUCT USED FOR UNKNOWN INDICATION
     Dosage: 0.1 MG DAILY
     Route: 048
  8. PAXIL [Concomitant]
     Active Substance: PAROXETINE HYDROCHLORIDE
     Indication: DEPRESSION
     Dosage: 70 MG, ONCE DAILY (QD)
     Route: 048
     Dates: start: 2015
  9. VALIUM [Concomitant]
     Active Substance: DIAZEPAM
     Indication: HEADACHE
  10. PAXIL [Concomitant]
     Active Substance: PAROXETINE HYDROCHLORIDE
     Indication: DEMENTIA ALZHEIMER^S TYPE
     Dosage: 30 MG, ONCE DAILY (QD)
     Route: 048
  11. LIPITOR [Concomitant]
     Active Substance: ATORVASTATIN CALCIUM
     Indication: PRODUCT USED FOR UNKNOWN INDICATION
     Dosage: 40 MG DAILY
     Route: 048
  12. PERCOCET [Concomitant]
     Active Substance: ACETAMINOPHEN\OXYCODONE HYDROCHLORIDE
     Indication: MUSCULOSKELETAL PAIN
  13. LACOSAMIDE. [Suspect]
     Active Substance: LACOSAMIDE
     Indication: SEIZURE
     Dosage: 150 MG, 2X/DAY (BID)
     Route: 048
     Dates: start: 2014
  14. SEROQUEL [Concomitant]
     Active Substance: QUETIAPINE FUMARATE
     Indication: EMOTIONAL DISORDER
     Dosage: 25 MG, ONCE DAILY (QD)
     Route: 048
  15. VALIUM [Concomitant]
     Active Substance: DIAZEPAM
     Indication: SLEEP DISORDER
     Dosage: 20 MG, AS NEEDED (PRN)
     Route: 048
  16. TOPAMAX [Concomitant]
     Active Substance: TOPIRAMATE
     Indication: PRODUCT USED FOR UNKNOWN INDICATION
     Dosage: 3 DF, ONCE DAILY (QD)
  17. NAMENDA [Concomitant]
     Active Substance: MEMANTINE HYDROCHLORIDE
     Indication: MEMORY IMPAIRMENT
     Dosage: 10 MG, 2X/DAY (BID)
     Route: 048
  18. LIDODERM [Concomitant]
     Active Substance: LIDOCAINE
     Indication: NECK PAIN
  19. XYLOCAINE [Concomitant]
     Active Substance: LIDOCAINE HYDROCHLORIDE
     Indication: NECK PAIN
     Dosage: 5 MG, UNK
     Route: 061
  20. XYLOCAINE [Concomitant]
     Active Substance: LIDOCAINE HYDROCHLORIDE
     Indication: MUSCULOSKELETAL PAIN
  21. LORAZEPAM. [Concomitant]
     Active Substance: LORAZEPAM
     Indication: EMOTIONAL DISORDER
     Dosage: UNK
     Route: 048
  22. ZOLOFT [Concomitant]
     Active Substance: SERTRALINE HYDROCHLORIDE
     Indication: PRODUCT USED FOR UNKNOWN INDICATION
  23. TOPAMAX [Concomitant]
     Active Substance: TOPIRAMATE
     Dosage: 4 DF, ONCE DAILY (QD)
     Route: 048
  24. DESYREL [Concomitant]
     Active Substance: TRAZODONE HYDROCHLORIDE
     Indication: PRODUCT USED FOR UNKNOWN INDICATION
     Dosage: 50 MG, ONCE DAILY (QD)
     Route: 048
  25. PROTONIX [Concomitant]
     Active Substance: PANTOPRAZOLE SODIUM
     Indication: PRODUCT USED FOR UNKNOWN INDICATION
     Dosage: 40 MG DAILY
     Route: 048
  26. LORAZEPAM. [Concomitant]
     Active Substance: LORAZEPAM
     Indication: HEADACHE
  27. PERCOCET [Concomitant]
     Active Substance: ACETAMINOPHEN\OXYCODONE HYDROCHLORIDE
     Indication: NECK PAIN
     Dosage: 10/325 MG 1-2 TIMES A DAY, AS NEEDED (PRN)
     Route: 048
  28. LIDODERM [Concomitant]
     Active Substance: LIDOCAINE
     Indication: MUSCULOSKELETAL PAIN
     Dosage: 700 MG, 2X/DAY (BID)
     Route: 061

REACTIONS (15)
  - Depression [Not Recovered/Not Resolved]
  - Musculoskeletal pain [Not Recovered/Not Resolved]
  - Epilepsy [Not Recovered/Not Resolved]
  - Post-traumatic headache [Not Recovered/Not Resolved]
  - Seizure [Recovered/Resolved]
  - Cervical radiculopathy [Not Recovered/Not Resolved]
  - Macular degeneration [Recovering/Resolving]
  - Paraesthesia [Not Recovered/Not Resolved]
  - Rotator cuff syndrome [Not Recovered/Not Resolved]
  - Frontotemporal dementia [Not Recovered/Not Resolved]
  - Mood altered [Not Recovered/Not Resolved]
  - Suicidal ideation [Not Recovered/Not Resolved]
  - Cervicogenic headache [Not Recovered/Not Resolved]
  - Cervical spinal stenosis [Not Recovered/Not Resolved]
  - Migraine [Not Recovered/Not Resolved]

NARRATIVE: CASE EVENT DATE: 20140203
